FAERS Safety Report 22127173 (Version 1)
Quarter: 2023Q1

REPORT INFORMATION
  Report Type: Spontaneous
  Country: US (occurrence: US)
  Receive Date: 20230322
  Receipt Date: 20230322
  Transmission Date: 20230417
  Serious: No
  Sender: FDA-Public Use
  Company Number: US-ALLERGAN-2232073US

PATIENT
  Sex: Male

DRUGS (6)
  1. ANDRODERM [Suspect]
     Active Substance: TESTOSTERONE
     Indication: Blood testosterone decreased
     Dosage: 2 MILLIGRAM 1 QD
     Route: 062
     Dates: start: 2021, end: 20220924
  2. medications for heart failure [Concomitant]
     Indication: Cardiac failure
  3. medication for kidney [Concomitant]
     Indication: Renal disorder
  4. medication for liver [Concomitant]
     Indication: Liver disorder
  5. UNSPECIFIED INGREDIENT [Concomitant]
     Active Substance: UNSPECIFIED INGREDIENT
     Indication: Hypertension
  6. medication for prostate enlargement [Concomitant]
     Indication: Prostatomegaly

REACTIONS (2)
  - Penile swelling [Recovering/Resolving]
  - Genital haemorrhage [Recovering/Resolving]

NARRATIVE: CASE EVENT DATE: 20210101
